FAERS Safety Report 6759343-9 (Version None)
Quarter: 2010Q2

REPORT INFORMATION
  Report Type: 
  Country: None (occurrence: None)
  Receive Date: 20100607
  Receipt Date: 20100528
  Transmission Date: 20101027
  Serious: Yes (Death)
  Sender: FDA-Public Use
  Company Number: US-ABBOTT-10P-163-0647651-01

PATIENT
  Sex: Female
  Weight: 81.72 kg

DRUGS (19)
  1. HUMIRA [Suspect]
     Indication: CROHN'S DISEASE
     Route: 058
     Dates: start: 20081117, end: 20100517
  2. WELLBUTRIN [Concomitant]
     Indication: DEPRESSION
     Dates: start: 20081223
  3. CALCIUM + VITAMIN D [Concomitant]
     Indication: MINERAL SUPPLEMENTATION
     Dates: start: 20081223
  4. CALCIUM + VITAMIN D [Concomitant]
     Indication: VITAMIN SUPPLEMENTATION
  5. CLONAZEPAM [Concomitant]
     Indication: GASTRIC DISORDER
     Dates: start: 20081223
  6. FENTANYL [Concomitant]
     Indication: ABDOMINAL PAIN
     Route: 061
     Dates: start: 20081223
  7. LAMICTAL [Concomitant]
     Indication: BIPOLAR DISORDER
     Dates: start: 20081223
  8. LOPERAMIDE [Concomitant]
     Indication: DIARRHOEA
     Dates: start: 20081223
  9. CLARITIN [Concomitant]
     Indication: SEASONAL ALLERGY
     Dates: start: 20081223
  10. MODAFINIL [Concomitant]
     Indication: INSOMNIA
     Dates: start: 20081223
  11. MODAFINIL [Concomitant]
     Indication: ANXIETY
  12. OMEPRAZOLE [Concomitant]
     Indication: GASTROOESOPHAGEAL REFLUX DISEASE
     Dates: start: 20081223
  13. OMEPRAZOLE [Concomitant]
     Indication: PEPTIC ULCER
  14. OXYBUTYNIN CHLORIDE [Concomitant]
     Indication: MICTURITION URGENCY
     Dates: start: 20081223
  15. OXYBUTYNIN CHLORIDE [Concomitant]
  16. PRAMIPEXOLE DIHYDROCHLORIDE [Concomitant]
     Indication: RESTLESS LEGS SYNDROME
     Dates: start: 20081223
  17. RIZATRIPTAN BENZOATE [Concomitant]
     Indication: MIGRAINE
     Dates: start: 20081223
  18. VALPROATE SODIUM [Concomitant]
     Indication: BIPOLAR DISORDER
     Dates: start: 20081223
  19. PERCOCET [Concomitant]
     Indication: PAIN
     Dosage: 5/325 MG 1 TO 2 TABLETS
     Dates: start: 20081223, end: 20100524

REACTIONS (1)
  - SUDDEN DEATH [None]
